FAERS Safety Report 13824051 (Version 8)
Quarter: 2018Q1

REPORT INFORMATION
  Report Type: Spontaneous
  Country: US (occurrence: US)
  Receive Date: 20170802
  Receipt Date: 20180129
  Transmission Date: 20180508
  Serious: Yes (Congenital Anomaly, Other)
  Sender: FDA-Public Use
  Company Number: PHEH2017US023722

PATIENT
  Sex: Male

DRUGS (1)
  1. ZOFRAN [Suspect]
     Active Substance: ONDANSETRON HYDROCHLORIDE
     Indication: FOETAL EXPOSURE DURING PREGNANCY
     Route: 064

REACTIONS (42)
  - Adenoidal hypertrophy [Unknown]
  - Cardiac murmur [Unknown]
  - Viral infection [Unknown]
  - Affect lability [Unknown]
  - Conjunctivitis [Unknown]
  - Heart disease congenital [Unknown]
  - Pulmonary valve incompetence [Unknown]
  - Loss of consciousness [Unknown]
  - Vomiting [Unknown]
  - Snoring [Recovered/Resolved]
  - Premature baby [Unknown]
  - Foetal exposure during pregnancy [Unknown]
  - Seizure [Unknown]
  - Overweight [Unknown]
  - Chronic obstructive pulmonary disease [Unknown]
  - Pyrexia [Unknown]
  - Upper respiratory tract infection [Unknown]
  - Mitral valve incompetence [Unknown]
  - Cardiomegaly [Unknown]
  - Cough [Unknown]
  - Anaemia [Unknown]
  - Abdominal pain [Recovering/Resolving]
  - Oropharyngeal pain [Unknown]
  - Jaundice neonatal [Unknown]
  - Impetigo [Unknown]
  - Sinus arrhythmia [Unknown]
  - Chronic tonsillitis [Unknown]
  - Right atrial enlargement [Unknown]
  - Syncope [Unknown]
  - Nasal congestion [Unknown]
  - Tympanic membrane perforation [Unknown]
  - Viral pharyngitis [Unknown]
  - Bronchitis [Unknown]
  - Diarrhoea [Unknown]
  - Rhinorrhoea [Unknown]
  - Injury [Unknown]
  - Rash [Unknown]
  - Atrial septal defect [Unknown]
  - Influenza [Unknown]
  - Head injury [Unknown]
  - Abdominal pain upper [Unknown]
  - Joint injury [Unknown]

NARRATIVE: CASE EVENT DATE: 200502
